FAERS Safety Report 6697045-8 (Version None)
Quarter: 2010Q2

REPORT INFORMATION
  Report Type: 
  Country: None (occurrence: None)
  Receive Date: 20100426
  Receipt Date: 20100415
  Transmission Date: 20101027
  Serious: Yes (Hospitalization)
  Sender: FDA-Public Use
  Company Number: SE-JNJFOC-20100405550

PATIENT
  Age: 54 Year
  Sex: Female

DRUGS (5)
  1. REMICADE [Suspect]
     Indication: RHEUMATOID ARTHRITIS
     Route: 042
     Dates: start: 20090817, end: 20090907
  2. ENBREL [Suspect]
     Indication: RHEUMATOID ARTHRITIS
     Dates: start: 20091209, end: 20100106
  3. PREDNISONE [Concomitant]
  4. PLAVIX [Concomitant]
  5. TROMBYL [Concomitant]
     Route: 048

REACTIONS (1)
  - CENTRAL NERVOUS SYSTEM MASS [None]
